FAERS Safety Report 6768048-X (Version None)
Quarter: 2010Q2

REPORT INFORMATION
  Report Type: 
  Country: None (occurrence: None)
  Receive Date: 20100614
  Receipt Date: 20100609
  Transmission Date: 20101027
  Serious: Yes (Hospitalization)
  Sender: FDA-Public Use
  Company Number: B0659667A

PATIENT
  Sex: Male

DRUGS (2)
  1. AUGMENTIN '125' [Suspect]
     Indication: OPPORTUNISTIC INFECTION PROPHYLAXIS
     Route: 048
     Dates: start: 20090101, end: 20090201
  2. PREVISCAN [Concomitant]
     Route: 065

REACTIONS (8)
  - CLOSTRIDIUM TEST POSITIVE [None]
  - COLITIS [None]
  - DIARRHOEA [None]
  - DIARRHOEA HAEMORRHAGIC [None]
  - LEUKOCYTOCLASTIC VASCULITIS [None]
  - PSEUDOMEMBRANOUS COLITIS [None]
  - PURPURA [None]
  - RENAL FAILURE ACUTE [None]
